FAERS Safety Report 25760136 (Version 1)
Quarter: 2025Q3

REPORT INFORMATION
  Report Type: Spontaneous
  Country: US (occurrence: US)
  Receive Date: 20250904
  Receipt Date: 20250904
  Transmission Date: 20251020
  Serious: No
  Sender: CELLTRION
  Company Number: US-CELLTRION INC.-2025US024094

PATIENT

DRUGS (7)
  1. YUFLYMA [Suspect]
     Active Substance: ADALIMUMAB-AATY
     Indication: Psoriatic arthropathy
     Dosage: YUFLYMA AI 40 MG INJECTED SUBCUTANEOUSLY EVERY 2 WEEKS
     Route: 058
     Dates: start: 20250701
  2. YUFLYMA [Suspect]
     Active Substance: ADALIMUMAB-AATY
  3. OZEMPIC [Concomitant]
     Active Substance: SEMAGLUTIDE
  4. DULOXETINE [Concomitant]
     Active Substance: DULOXETINE
  5. ROSUVASTATIN [Concomitant]
     Active Substance: ROSUVASTATIN
  6. URSODIOL [Concomitant]
     Active Substance: URSODIOL
  7. PANTOPRAZOLE [Concomitant]
     Active Substance: PANTOPRAZOLE

REACTIONS (2)
  - Device malfunction [Not Recovered/Not Resolved]
  - Drug dose omission by device [Not Recovered/Not Resolved]

NARRATIVE: CASE EVENT DATE: 20250715
